FAERS Safety Report 9219566 (Version 3)
Quarter: 2013Q2

REPORT INFORMATION
  Report Type: Spontaneous
  Country: US (occurrence: US)
  Receive Date: 20130409
  Receipt Date: 20130509
  Transmission Date: 20140414
  Serious: No
  Sender: FDA-Public Use
  Company Number: US-PFIZER INC-2013106684

PATIENT
  Sex: Male
  Weight: 77.1 kg

DRUGS (1)
  1. XALKORI [Suspect]
     Indication: LUNG CARCINOMA CELL TYPE UNSPECIFIED STAGE IV
     Dosage: 250 MG TWO TIMES A DAY
     Route: 048
     Dates: start: 2012

REACTIONS (2)
  - Eructation [Unknown]
  - Product quality issue [Unknown]
